FAERS Safety Report 8489297-9 (Version None)
Quarter: 2012Q3

REPORT INFORMATION
  Report Type: 
  Country: None (occurrence: None)
  Receive Date: 20120705
  Receipt Date: 20120629
  Transmission Date: 20120928
  Serious: No
  Sender: FDA-Public Use
  Company Number: US-PFIZER INC-2012157015

PATIENT
  Sex: Female
  Weight: 59 kg

DRUGS (7)
  1. HYDROCHLOROTHIAZIDE [Concomitant]
     Dosage: 25 MG, UNK
  2. AZITHROMYCIN [Suspect]
     Indication: BACTERIAL INFECTION
     Dosage: 250 MG, 1X/DAY
     Route: 048
     Dates: start: 20120607, end: 20120611
  3. LOPRESSOR [Concomitant]
     Dosage: 50 MG, UNK
  4. FLEXERIL [Concomitant]
     Dosage: 10 MG, UNK
  5. SYNTHROID [Concomitant]
     Dosage: 175 UG, UNK
  6. POTASSIUM PHOSPHATES [Concomitant]
     Dosage: UNK
  7. COUMADIN [Concomitant]
     Dosage: 4 MG, UNK

REACTIONS (1)
  - DYSGEUSIA [None]
